FAERS Safety Report 5413039-4 (Version None)
Quarter: 2007Q3

REPORT INFORMATION
  Report Type: 
  Country: None (occurrence: None)
  Receive Date: 20070713
  Receipt Date: 20070517
  Transmission Date: 20080115
  Serious: No
  Sender: FDA-Public Use
  Company Number: 2006SP003885

PATIENT
  Age: 35 Year
  Sex: Female
  Weight: 61.2356 kg

DRUGS (4)
  1. LUNESTA [Suspect]
     Indication: INSOMNIA
     Dosage: 2 MG; HS; ORAL
     Route: 048
     Dates: start: 20061030, end: 20061101
  2. LORAZEPAM [Concomitant]
  3. LEXAPRO [Concomitant]
  4. TEMAZEPAM [Concomitant]

REACTIONS (2)
  - INSOMNIA [None]
  - PREMATURE BABY [None]
